FAERS Safety Report 24782758 (Version 1)
Quarter: 2024Q4

REPORT INFORMATION
  Report Type: Spontaneous
  Country: US (occurrence: None)
  Receive Date: 20241226
  Receipt Date: 20241226
  Transmission Date: 20250114
  Serious: Yes (Life-Threatening, Hospitalization)
  Sender: Public
  Company Number: None

PATIENT
  Age: 40 Year
  Sex: Female
  Weight: 56.25 kg

DRUGS (1)
  1. CYTOTEC [Suspect]
     Active Substance: MISOPROSTOL
     Indication: Abortion spontaneous
     Dosage: OTHER QUANTITY : 4 TABLET(S);?OTHER FREQUENCY : ONE TIME;?
     Route: 067

REACTIONS (3)
  - Induced abortion haemorrhage [None]
  - Haemorrhage [None]
  - Transfusion [None]

NARRATIVE: CASE EVENT DATE: 20241218
